FAERS Safety Report 10269029 (Version 1)
Quarter: 2014Q2

REPORT INFORMATION
  Report Type: Spontaneous
  Country: US (occurrence: US)
  Receive Date: 20140630
  Receipt Date: 20140630
  Transmission Date: 20141212
  Serious: No
  Sender: FDA-Public Use
  Company Number: US-009507513-1406USA006540

PATIENT
  Age: 80 Year
  Sex: Female
  Weight: 67.57 kg

DRUGS (11)
  1. CLARITIN-D-24 [Suspect]
     Indication: SEASONAL ALLERGY
     Dosage: 10 MG, ONCE
     Route: 048
     Dates: start: 20140531, end: 20140531
  2. CENTRUM SILVER [Concomitant]
     Indication: PRODUCT USED FOR UNKNOWN INDICATION
     Dosage: UNK, QD
  3. VENLAFAXINE HYDROCHLORIDE [Concomitant]
     Indication: DEPRESSION
     Dosage: UNK, UNKNOWN
  4. OMEPRAZOLE [Concomitant]
     Indication: GASTROOESOPHAGEAL REFLUX DISEASE
     Dosage: 1 DF, BID
  5. ATORVASTATIN [Concomitant]
     Indication: BLOOD CHOLESTEROL
     Dosage: UNK, UNKNOWN
  6. TEMAZEPAM [Concomitant]
     Indication: SLEEP DISORDER THERAPY
     Dosage: UNK, UNKNOWN
  7. LISINOPRIL [Concomitant]
     Indication: HYPERTENSION
     Dosage: UNK, UNKNOWN
  8. AMLODIPINE BESYLATE [Concomitant]
     Indication: HYPERTENSION
     Dosage: UNK, UNKNOWN
  9. ADVAIR [Concomitant]
     Indication: CHRONIC OBSTRUCTIVE PULMONARY DISEASE
     Dosage: UNK, UNKNOWN
  10. SPIRIVA [Concomitant]
     Indication: CHRONIC OBSTRUCTIVE PULMONARY DISEASE
     Dosage: UNK, UNKNOWN
  11. ASPIRIN [Concomitant]
     Indication: PRODUCT USED FOR UNKNOWN INDICATION
     Dosage: UNK, UNKNOWN

REACTIONS (1)
  - Vomiting [Recovered/Resolved]
